FAERS Safety Report 20779590 (Version 1)
Quarter: 2022Q2

REPORT INFORMATION
  Report Type: Report from Study
  Country: GB (occurrence: GB)
  Receive Date: 20220503
  Receipt Date: 20220503
  Transmission Date: 20220721
  Serious: Yes (Death)
  Sender: FDA-Public Use
  Company Number: GB-PFIZER INC-202200647005

PATIENT

DRUGS (3)
  1. CISPLATIN [Suspect]
     Active Substance: CISPLATIN
     Indication: Biliary neoplasm
     Dosage: 25 MG/M2, CYCLIC: (MAXIMUM OF EIGHT CYCLES)
     Route: 042
  2. GEMCITABINE HYDROCHLORIDE [Suspect]
     Active Substance: GEMCITABINE HYDROCHLORIDE
     Indication: Biliary neoplasm
     Dosage: 1000 MG/M2, CYCLIC ((ON DAYS 1 AND 8 IN 21-DAY CYCLES, FOR A MAXIMUM OF EIGHT CYCLES)
     Route: 042
  3. RAMUCIRUMAB [Suspect]
     Active Substance: RAMUCIRUMAB
     Indication: Biliary neoplasm
     Dosage: 8 MG/KG, CYCLIC: ON DAY 1 AND 8 IN 21-DAY CYCLES
     Route: 042

REACTIONS (1)
  - Cardiac arrest [Fatal]
